FAERS Safety Report 20757888 (Version 2)
Quarter: 2022Q2

REPORT INFORMATION
  Report Type: Spontaneous
  Country: US (occurrence: US)
  Receive Date: 20220427
  Receipt Date: 20220614
  Transmission Date: 20220720
  Serious: Yes (Hospitalization, Other)
  Sender: FDA-Public Use
  Company Number: US-BRISTOL-MYERS SQUIBB COMPANY-2022-024701

PATIENT
  Age: 62 Year
  Sex: Male
  Weight: 64.863 kg

DRUGS (2)
  1. REVLIMID [Suspect]
     Active Substance: LENALIDOMIDE
     Indication: Plasma cell myeloma
     Route: 048
  2. REVLIMID [Suspect]
     Active Substance: LENALIDOMIDE
     Dosage: 14 DAYS ON 7 DAYS OFF
     Route: 048
     Dates: start: 202203

REACTIONS (5)
  - Decreased appetite [Not Recovered/Not Resolved]
  - Pulmonary oedema [Unknown]
  - Pyrexia [Recovered/Resolved]
  - Heart rate increased [Unknown]
  - Off label use [Unknown]

NARRATIVE: CASE EVENT DATE: 20220101
